FAERS Safety Report 7796963-7 (Version None)
Quarter: 2011Q4

REPORT INFORMATION
  Report Type: 
  Country: None (occurrence: None)
  Receive Date: 20111005
  Receipt Date: 20111005
  Transmission Date: 20120403
  Serious: Yes (Other)
  Sender: FDA-Public Use
  Company Number: None

PATIENT
  Age: 32 Year
  Sex: Female
  Weight: 68.038 kg

DRUGS (2)
  1. CRYSELLE [Suspect]
     Indication: MUSCLE SPASMS
     Dosage: 1
     Route: 048
     Dates: start: 20110918, end: 20110930
  2. CRYSELLE [Suspect]
     Indication: MENORRHAGIA
     Dosage: 1
     Route: 048
     Dates: start: 20110918, end: 20110930

REACTIONS (7)
  - PRODUCT SUBSTITUTION ISSUE [None]
  - POSTURE ABNORMAL [None]
  - FATIGUE [None]
  - DEPRESSION [None]
  - EMOTIONAL DISORDER [None]
  - EYE DISORDER [None]
  - LETHARGY [None]
